FAERS Safety Report 6662626-4 (Version None)
Quarter: 2010Q1

REPORT INFORMATION
  Report Type: 
  Country: None (occurrence: None)
  Receive Date: 20100329
  Receipt Date: 20100318
  Transmission Date: 20100710
  Serious: Yes (Death, Life-Threatening)
  Sender: FDA-Public Use
  Company Number: 056-20484-10020535

PATIENT
  Age: 68 Year
  Sex: Male

DRUGS (2)
  1. INNOHEP [Suspect]
     Indication: DEEP VEIN THROMBOSIS
     Dosage: SUBCUTANEOUS
     Route: 058
     Dates: start: 20090701, end: 20100106
  2. TARCEVA [Suspect]

REACTIONS (3)
  - CEREBRAL ISCHAEMIA [None]
  - THROMBOCYTOPENIA [None]
  - THROMBOSIS [None]
